FAERS Safety Report 7413342-2 (Version None)
Quarter: 2011Q2

REPORT INFORMATION
  Report Type: 
  Country: None (occurrence: None)
  Receive Date: 20110413
  Receipt Date: 20101006
  Transmission Date: 20111010
  Serious: No
  Sender: FDA-Public Use
  Company Number: US-ASTRAZENECA-2010SE47274

PATIENT
  Sex: Female

DRUGS (1)
  1. TENORMIN [Suspect]
     Indication: HYPERTENSION
     Route: 048

REACTIONS (1)
  - MALAISE [None]
